FAERS Safety Report 8986981 (Version 1)
Quarter: 2012Q4

REPORT INFORMATION
  Report Type: Report from Study
  Country: GB (occurrence: US)
  Receive Date: 20121226
  Receipt Date: 20121226
  Transmission Date: 20130627
  Serious: Yes (Other)
  Sender: FDA-Public Use
  Company Number: GB-BAXTER-2012BAX011453

PATIENT
  Age: 6 Year
  Weight: 16 kg

DRUGS (1)
  1. ADVATE [Suspect]
     Indication: IMMUNE TOLERANCE INDUCTION
     Dosage: FIRST DOSE
     Route: 042
     Dates: start: 20050110

REACTIONS (3)
  - Chest pain [Recovered/Resolved]
  - Throat tightness [Recovered/Resolved]
  - Bronchospasm [Recovered/Resolved]
